FAERS Safety Report 10077509 (Version 2)
Quarter: 2014Q2

REPORT INFORMATION
  Report Type: Spontaneous
  Country: US (occurrence: US)
  Receive Date: 20140414
  Receipt Date: 20140414
  Transmission Date: 20141212
  Serious: No
  Sender: FDA-Public Use
  Company Number: US-BANPHARM-20131708

PATIENT
  Age: 62 Year
  Sex: Female

DRUGS (3)
  1. ALEVE LIQUID GELS 220 MG [Suspect]
     Indication: PAIN
     Dosage: 2 DF, TID,
     Route: 048
     Dates: start: 2009
  2. BAYER ASPIRIN 500 MG [Suspect]
     Indication: BACK PAIN
     Dosage: 1 DF, PRN,
     Route: 048
  3. LOW DOSE BAYER ASPIRIN [Concomitant]
     Indication: CARDIOVASCULAR EVENT PROPHYLAXIS

REACTIONS (4)
  - Product taste abnormal [Not Recovered/Not Resolved]
  - Drug effect incomplete [Unknown]
  - Incorrect drug administration duration [Unknown]
  - Incorrect dose administered [Unknown]
